FAERS Safety Report 13329878 (Version 2)
Quarter: 2017Q3

REPORT INFORMATION
  Report Type: Report from Study
  Country: None (occurrence: US)
  Receive Date: 20170313
  Receipt Date: 20170928
  Transmission Date: 20171127
  Serious: Yes (Hospitalization, Other)
  Sender: FDA-Public Use
  Company Number: US-ABBVIE-16K-163-1790483-00

PATIENT
  Age: 60 Year
  Sex: Female
  Weight: 79.45 kg

DRUGS (3)
  1. HUMIRA [Suspect]
     Active Substance: ADALIMUMAB
     Route: 058
     Dates: start: 20161125, end: 201708
  2. HUMIRA [Suspect]
     Active Substance: ADALIMUMAB
     Indication: RHEUMATOID ARTHRITIS
     Route: 058
     Dates: start: 201410, end: 201611
  3. PERCOCET [Suspect]
     Active Substance: ACETAMINOPHEN\OXYCODONE HYDROCHLORIDE
     Indication: PROCEDURAL PAIN
     Route: 065

REACTIONS (11)
  - Abdominal discomfort [Recovered/Resolved]
  - Osteoarthritis [Recovered/Resolved]
  - Laceration [Recovering/Resolving]
  - Injury [Unknown]
  - Rheumatoid arthritis [Unknown]
  - Osteoarthritis [Recovering/Resolving]
  - Reduced facial expression [Recovered/Resolved]
  - Post procedural complication [Recovered/Resolved]
  - Postoperative adhesion [Recovered/Resolved]
  - Tooth fracture [Recovered/Resolved]
  - Impaired healing [Recovered/Resolved]

NARRATIVE: CASE EVENT DATE: 201611
